FAERS Safety Report 7767817-7 (Version None)
Quarter: 2011Q3

REPORT INFORMATION
  Report Type: 
  Country: None (occurrence: None)
  Receive Date: 20110922
  Receipt Date: 20100915
  Transmission Date: 20111222
  Serious: No
  Sender: FDA-Public Use
  Company Number: US-ASTRAZENECA-2010SE43443

PATIENT
  Age: 26 Year
  Sex: Male
  Weight: 90.7 kg

DRUGS (7)
  1. SEROQUEL XR [Suspect]
     Indication: DEPRESSION
     Route: 048
     Dates: start: 20100701
  2. VISTARIL [Concomitant]
  3. SEROQUEL XR [Suspect]
     Indication: PAIN
     Route: 048
     Dates: start: 20100701
  4. CYMBALTA [Concomitant]
  5. ZANAFLEX [Concomitant]
  6. LYRICA [Concomitant]
  7. FLECTOR [Concomitant]

REACTIONS (5)
  - ABNORMAL BEHAVIOUR [None]
  - AGGRESSION [None]
  - LOGORRHOEA [None]
  - INSOMNIA [None]
  - DRUG DOSE OMISSION [None]
